FAERS Safety Report 25659852 (Version 1)
Quarter: 2025Q3

REPORT INFORMATION
  Report Type: Spontaneous
  Country: US (occurrence: US)
  Receive Date: 20250808
  Receipt Date: 20250808
  Transmission Date: 20251021
  Serious: Yes (Hospitalization)
  Sender: PARATEK PHARMACEUTICALS
  Company Number: US-PARATEK PHARMACEUTICALS, INC.-2025PTK00949

PATIENT
  Age: 64 Year
  Sex: Male

DRUGS (12)
  1. OMADACYCLINE [Suspect]
     Active Substance: OMADACYCLINE
     Indication: Dural abscess
     Route: 042
     Dates: start: 2025, end: 2025
  2. OMADACYCLINE [Suspect]
     Active Substance: OMADACYCLINE
     Indication: Mycobacterium abscessus infection
  3. OMADACYCLINE [Suspect]
     Active Substance: OMADACYCLINE
     Indication: Bacterial test positive
  4. AMIKACIN SULFATE [Suspect]
     Active Substance: AMIKACIN SULFATE
     Indication: Dural abscess
     Dates: start: 2025, end: 2025
  5. AMIKACIN SULFATE [Suspect]
     Active Substance: AMIKACIN SULFATE
     Indication: Mycobacterium abscessus infection
  6. AMIKACIN SULFATE [Suspect]
     Active Substance: AMIKACIN SULFATE
     Indication: Bacterial test positive
  7. IMIPENEM [Suspect]
     Active Substance: IMIPENEM
     Indication: Dural abscess
     Dates: start: 2025, end: 2025
  8. IMIPENEM [Suspect]
     Active Substance: IMIPENEM
     Indication: Mycobacterium abscessus infection
  9. IMIPENEM [Suspect]
     Active Substance: IMIPENEM
     Indication: Bacterial test positive
  10. AZITHROMYCIN [Suspect]
     Active Substance: AZITHROMYCIN
     Indication: Dural abscess
     Dates: start: 2025
  11. AZITHROMYCIN [Suspect]
     Active Substance: AZITHROMYCIN
     Indication: Mycobacterium abscessus infection
  12. AZITHROMYCIN [Suspect]
     Active Substance: AZITHROMYCIN
     Indication: Bacterial test positive

REACTIONS (3)
  - Mycobacterium abscessus infection [Unknown]
  - Spinal cord abscess [Unknown]
  - Drug ineffective for unapproved indication [Recovered/Resolved]

NARRATIVE: CASE EVENT DATE: 20250101
